FAERS Safety Report 13405400 (Version 1)
Quarter: 2017Q2

REPORT INFORMATION
  Report Type: Spontaneous
  Country: US (occurrence: US)
  Receive Date: 20170405
  Receipt Date: 20170405
  Transmission Date: 20170830
  Serious: No
  Sender: FDA-Public Use
  Company Number: US-PFIZER INC-2017139432

PATIENT
  Sex: Female

DRUGS (1)
  1. XELJANZ XR [Suspect]
     Active Substance: TOFACITINIB CITRATE
     Dosage: 11 MG, DAILY

REACTIONS (24)
  - Paraesthesia [Unknown]
  - Visual impairment [Unknown]
  - Gingival bleeding [Unknown]
  - Sinus disorder [Unknown]
  - Rash [Unknown]
  - Hypoaesthesia [Unknown]
  - Nausea [Unknown]
  - Dry mouth [Unknown]
  - Dry eye [Unknown]
  - Ocular hyperaemia [Unknown]
  - Peripheral swelling [Unknown]
  - Pain in extremity [Unknown]
  - Photosensitivity reaction [Unknown]
  - Dry skin [Unknown]
  - Blood urine present [Unknown]
  - Dizziness [Unknown]
  - Insomnia [Unknown]
  - Pyrexia [Unknown]
  - Tinnitus [Unknown]
  - Chills [Unknown]
  - Fatigue [Unknown]
  - Epistaxis [Unknown]
  - Pruritus [Unknown]
  - Headache [Unknown]
